FAERS Safety Report 13115195 (Version 16)
Quarter: 2018Q2

REPORT INFORMATION
  Report Type: Spontaneous
  Country: US (occurrence: US)
  Receive Date: 20170113
  Receipt Date: 20180625
  Transmission Date: 20180711
  Serious: Yes (Hospitalization)
  Sender: FDA-Public Use
  Company Number: US-ACTELION-A-US2016-137970

PATIENT
  Age: 41 Year
  Sex: Female

DRUGS (8)
  1. TYVASO [Concomitant]
     Active Substance: TREPROSTINIL
     Dosage: 11 BREATHS, QID
     Dates: start: 20160520
  2. ADEMPAS [Concomitant]
     Active Substance: RIOCIGUAT
     Dosage: 1.5 MG, TID
     Dates: start: 201611, end: 20170118
  3. ORENITRAM [Suspect]
     Active Substance: TREPROSTINIL
     Dosage: 1.25 MG, TID
     Route: 048
     Dates: start: 20170705
  4. ORENITRAM [Suspect]
     Active Substance: TREPROSTINIL
     Indication: PRODUCT USED FOR UNKNOWN INDICATION
     Dosage: UNK
     Route: 048
     Dates: start: 20170126, end: 20170704
  5. HYDROCHLOROTHIAZIDE. [Concomitant]
     Active Substance: HYDROCHLOROTHIAZIDE
  6. OPSUMIT [Suspect]
     Active Substance: MACITENTAN
     Indication: PULMONARY ARTERIAL HYPERTENSION
     Dosage: 10 MG, QD
     Route: 048
     Dates: start: 20160226
  7. ORENITRAM [Suspect]
     Active Substance: TREPROSTINIL
     Dosage: 1.125 MG, TID
     Route: 048
  8. ADCIRCA [Concomitant]
     Active Substance: TADALAFIL

REACTIONS (20)
  - Dyspepsia [Unknown]
  - Condition aggravated [Unknown]
  - Headache [Unknown]
  - Myocardial infarction [Unknown]
  - Fluid retention [Unknown]
  - Pain in extremity [Unknown]
  - Unevaluable event [Unknown]
  - Therapeutic product ineffective [Unknown]
  - Migraine [Recovered/Resolved]
  - Fatigue [Unknown]
  - Chest pain [Unknown]
  - Menorrhagia [Not Recovered/Not Resolved]
  - Dyspnoea [Unknown]
  - Pain in jaw [Unknown]
  - Catheter site inflammation [Unknown]
  - Oedema peripheral [Unknown]
  - Diarrhoea [Unknown]
  - Pain [Unknown]
  - Arthralgia [Unknown]
  - Application site vesicles [Unknown]

NARRATIVE: CASE EVENT DATE: 20161210
